FAERS Safety Report 9950366 (Version 1)
Quarter: 2014Q1

REPORT INFORMATION
  Report Type: Report from Study
  Country: US (occurrence: US)
  Receive Date: 20140304
  Receipt Date: 20140304
  Transmission Date: 20141002
  Serious: No
  Sender: FDA-Public Use
  Company Number: US-ABBVIE-13P-163-1070422-00

PATIENT
  Age: 68 Year
  Sex: Female

DRUGS (20)
  1. HUMIRA [Suspect]
     Indication: CROHN^S DISEASE
     Dates: start: 20130227, end: 20130227
  2. HUMIRA [Suspect]
     Dates: start: 20130313, end: 20130313
  3. HUMIRA [Suspect]
     Dates: start: 20130327
  4. PENTASA [Concomitant]
     Indication: CROHN^S DISEASE
  5. GAS-X [Concomitant]
     Indication: FLATULENCE
  6. MAGNESIUM [Concomitant]
     Indication: SUPPLEMENTATION THERAPY
  7. HYOSCYAMINE [Concomitant]
     Indication: ABDOMINAL PAIN
  8. LORTAB [Concomitant]
     Indication: PAIN
     Dosage: PRN
  9. MIRALAX [Concomitant]
     Indication: CONSTIPATION
     Dosage: UP TO BID
  10. PREVACID [Concomitant]
     Indication: GASTROOESOPHAGEAL REFLUX PROPHYLAXIS
  11. COREG [Concomitant]
     Indication: HYPERTENSION
  12. ZETIA [Concomitant]
     Indication: BLOOD CHOLESTEROL INCREASED
  13. CRESTOR [Concomitant]
     Indication: BLOOD CHOLESTEROL INCREASED
  14. VERAPAMIL [Concomitant]
     Indication: DRUG THERAPY
  15. DETROL LA [Concomitant]
     Indication: HYPERTONIC BLADDER
  16. SINGULAIR [Concomitant]
     Indication: ASTHMA
  17. SINGULAIR [Concomitant]
     Indication: HYPERSENSITIVITY
  18. SINEMET [Concomitant]
     Indication: PARKINSON^S DISEASE
  19. CARBIDOPA/LEVODOPA [Concomitant]
     Indication: PARKINSON^S DISEASE
  20. KEPPRA [Concomitant]
     Indication: EPILEPSY

REACTIONS (4)
  - Weight decreased [Recovering/Resolving]
  - Crohn^s disease [Recovering/Resolving]
  - Gastrointestinal stoma complication [Recovering/Resolving]
  - Device malfunction [Unknown]
